FAERS Safety Report 15896376 (Version 1)
Quarter: 2019Q1

REPORT INFORMATION
  Report Type: Spontaneous
  Country: NL (occurrence: NL)
  Receive Date: 20190131
  Receipt Date: 20190131
  Transmission Date: 20190417
  Serious: Yes (Hospitalization)
  Sender: FDA-Public Use
  Company Number: NL-TEVA-2019-NL-1005535

PATIENT
  Age: 13 Year
  Sex: Female
  Weight: 50 kg

DRUGS (2)
  1. METOCLOPRAMIDE TABLET, 10 MG (MILLIGRAM) [Suspect]
     Active Substance: METOCLOPRAMIDE
     Indication: VOMITING
     Dates: start: 20190104, end: 20190105
  2. AUGMENTIN (DOSERING NIET BEKEND) [Concomitant]
     Dates: start: 20181229

REACTIONS (5)
  - Extrapyramidal disorder [Recovered/Resolved]
  - Oromandibular dystonia [Recovered/Resolved]
  - Tremor [Recovered/Resolved]
  - Dystonia [Recovered/Resolved]
  - Oculogyric crisis [Recovered/Resolved]

NARRATIVE: CASE EVENT DATE: 20190105
